FAERS Safety Report 6337300-4 (Version None)
Quarter: 2009Q3

REPORT INFORMATION
  Report Type: 
  Country: None (occurrence: None)
  Receive Date: 20090828
  Receipt Date: 20090828
  Transmission Date: 20100115
  Serious: Yes (Hospitalization)
  Sender: FDA-Public Use
  Company Number: None

PATIENT
  Age: 44 Year
  Sex: Female

DRUGS (5)
  1. LITHIUM CARBONATE [Suspect]
     Indication: BIPOLAR DISORDER
  2. SYNTHROID [Concomitant]
  3. AMBIEN [Concomitant]
  4. MIRTAZAPINE [Concomitant]
  5. HYDROXYZINE [Concomitant]

REACTIONS (8)
  - ANTIPSYCHOTIC DRUG LEVEL ABOVE THERAPEUTIC [None]
  - DEHYDRATION [None]
  - DEPRESSIVE SYMPTOM [None]
  - DIARRHOEA [None]
  - HYPONATRAEMIA [None]
  - NAUSEA [None]
  - RENAL IMPAIRMENT [None]
  - VOMITING [None]
